FAERS Safety Report 18514554 (Version 1)
Quarter: 2020Q4

REPORT INFORMATION
  Report Type: Spontaneous
  Country: US (occurrence: US)
  Receive Date: 20201118
  Receipt Date: 20201118
  Transmission Date: 20210114
  Serious: No
  Sender: FDA-Public Use
  Company Number: US-NALPROPION PHARMACEUTICALS INC.-2020-010575

PATIENT
  Sex: Female

DRUGS (4)
  1. CONTRAVE [Suspect]
     Active Substance: BUPROPION HYDROCHLORIDE\NALTREXONE HYDROCHLORIDE
     Indication: WEIGHT CONTROL
     Dosage: UNK
     Route: 065
  2. VIVITROL [Suspect]
     Active Substance: NALTREXONE
     Indication: DRUG DEPENDENCE
     Dosage: 380 MG, MONTHLY (ROUTE: INTRAMUSCULAR-GLUTEAL)
     Route: 030
     Dates: start: 202006
  3. VIVITROL [Suspect]
     Active Substance: NALTREXONE
     Indication: WEIGHT DECREASED
     Dosage: 380 MG, MONTHLY (ROUTE: INTRAMUSCULAR-GLUTEAL)
     Route: 030
     Dates: start: 202006
  4. NALTREXONE [Suspect]
     Active Substance: NALTREXONE
     Indication: PRODUCT USED FOR UNKNOWN INDICATION
     Dosage: UNK
     Route: 048

REACTIONS (2)
  - Drug screen false positive [Recovered/Resolved]
  - Contraindicated product administered [Unknown]
